FAERS Safety Report 4736376-5 (Version None)
Quarter: 2005Q3

REPORT INFORMATION
  Report Type: 
  Country: None (occurrence: None)
  Receive Date: 20050802
  Receipt Date: 20050721
  Transmission Date: 20060218
  Serious: Yes (Life-Threatening, Other)
  Sender: FDA-Public Use
  Company Number: 2005106133

PATIENT
  Age: 63 Year
  Sex: Female
  Weight: 107 kg

DRUGS (1)
  1. FRAGMIN [Suspect]
     Indication: ILL-DEFINED DISORDER
     Dosage: 2500 I.U. (2500 I.U., 1 IN 1 D) SUBCUTANEOUS
     Route: 058
     Dates: start: 20050711

REACTIONS (1)
  - PULMONARY EMBOLISM [None]
